FAERS Safety Report 5368897-9 (Version None)
Quarter: 2007Q2

REPORT INFORMATION
  Report Type: 
  Country: None (occurrence: None)
  Receive Date: 20070625
  Receipt Date: 20061218
  Transmission Date: 20071010
  Serious: No
  Sender: FDA-Public Use
  Company Number: US-ASTRAZENECA-2006UW19818

PATIENT
  Age: 87 Year
  Sex: Female
  Weight: 62.7 kg

DRUGS (1)
  1. CRESTOR [Suspect]
     Route: 048

REACTIONS (6)
  - EYE SWELLING [None]
  - FLUSHING [None]
  - LIP SWELLING [None]
  - SWELLING [None]
  - SWOLLEN TONGUE [None]
  - THROAT IRRITATION [None]
